FAERS Safety Report 24568407 (Version 1)
Quarter: 2024Q4

REPORT INFORMATION
  Report Type: Report from Study
  Country: US (occurrence: US)
  Receive Date: 20241031
  Receipt Date: 20241031
  Transmission Date: 20250115
  Serious: Yes (Hospitalization)
  Sender: ABBVIE
  Company Number: US-ABBVIE-5743419

PATIENT
  Age: 70 Year
  Sex: Male

DRUGS (1)
  1. RINVOQ [Suspect]
     Active Substance: UPADACITINIB
     Indication: Dermatitis atopic
     Dosage: END DATE 2024
     Route: 048
     Dates: start: 202402

REACTIONS (15)
  - Diverticulitis [Unknown]
  - Weight decreased [Unknown]
  - Skin discharge [Unknown]
  - Malaise [Unknown]
  - Insomnia [Unknown]
  - Cardiac disorder [Unknown]
  - Infection [Unknown]
  - Eye pain [Unknown]
  - Secretion discharge [Unknown]
  - Eye pruritus [Unknown]
  - Ocular hyperaemia [Unknown]
  - Hypotension [Unknown]
  - Hypertension [Unknown]
  - Ear pruritus [Unknown]
  - Nasal pruritus [Unknown]

NARRATIVE: CASE EVENT DATE: 20240101
